FAERS Safety Report 7742773-6 (Version None)
Quarter: 2011Q3

REPORT INFORMATION
  Report Type: 
  Country: None (occurrence: None)
  Receive Date: 20110912
  Receipt Date: 20110902
  Transmission Date: 20111222
  Serious: Yes (Hospitalization, Other)
  Sender: FDA-Public Use
  Company Number: FR-AMGEN-FRACT2011045622

PATIENT
  Sex: Male

DRUGS (5)
  1. CLONAZEPAM [Concomitant]
     Indication: EPILEPSY
     Dosage: UNK UNK, QD
  2. TAXOTERE [Concomitant]
     Dosage: 75 MG/M2, UNK
     Dates: start: 20090623
  3. KEPPRA [Concomitant]
     Indication: EPILEPSY
     Dosage: 500 MG, BID
     Route: 048
     Dates: start: 20100301
  4. DENOSUMAB [Suspect]
     Indication: METASTASES TO BONE
     Dosage: UNK
  5. PREDNISONE [Concomitant]
     Indication: PREMEDICATION
     Dosage: UNK UNK, QD

REACTIONS (4)
  - EPILEPSY [None]
  - OSTEONECROSIS OF JAW [None]
  - PAIN IN JAW [None]
  - TOOTH ABSCESS [None]
